FAERS Safety Report 24133133 (Version 2)
Quarter: 2024Q3

REPORT INFORMATION
  Report Type: Report from Study
  Country: AE (occurrence: None)
  Receive Date: 20240724
  Receipt Date: 20240805
  Transmission Date: 20241017
  Serious: Yes (Hospitalization)
  Sender: ASTRAZENECA
  Company Number: 2023A171496

PATIENT
  Age: 53 Year
  Sex: Female
  Weight: 62 kg

DRUGS (1)
  1. EVUSHELD [Suspect]
     Active Substance: CILGAVIMAB\TIXAGEVIMAB
     Indication: COVID-19 treatment
     Dosage: 3 ML, ONCE/SINGLE ADMINISTRATION, THIGH
     Route: 030
     Dates: start: 20221107

REACTIONS (1)
  - Acute myeloid leukaemia (in remission) [Recovered/Resolved]

NARRATIVE: CASE EVENT DATE: 20230531
